FAERS Safety Report 5881462-X (Version None)
Quarter: 2008Q3

REPORT INFORMATION
  Report Type: 
  Country: None (occurrence: None)
  Receive Date: 20080912
  Receipt Date: 20080701
  Transmission Date: 20090109
  Serious: No
  Sender: FDA-Public Use
  Company Number: US-ABBOTT-08P-163-0460525-00

PATIENT
  Sex: Female
  Weight: 54.48 kg

DRUGS (11)
  1. HUMIRA [Suspect]
     Indication: RHEUMATOID ARTHRITIS
     Route: 058
     Dates: start: 20070820
  2. METHOTREXATE [Concomitant]
     Indication: RHEUMATOID ARTHRITIS
     Route: 048
     Dates: start: 20050401
  3. LECOVONIN CALCIUM [Concomitant]
     Indication: RHEUMATOID ARTHRITIS
     Route: 048
     Dates: start: 20051001
  4. LEVOTHYROXINE SODIUM [Concomitant]
     Indication: HYPOTHYROIDISM
     Route: 048
     Dates: start: 19680101
  5. SIMVASTIN, GENERIC ZOCAR [Concomitant]
     Indication: BLOOD CHOLESTEROL INCREASED
     Route: 048
     Dates: start: 20020101
  6. MECLIZINE HCL [Concomitant]
     Indication: DIZZINESS
     Route: 048
     Dates: start: 19920101
  7. DARIFENACIN [Concomitant]
     Indication: BLADDER SPASM
     Route: 048
     Dates: start: 20070201
  8. CENTRUM CARDIO VITIAMINS [Concomitant]
     Indication: VITAMIN SUPPLEMENTATION
     Route: 048
     Dates: start: 20080501
  9. CALTRATE [Concomitant]
     Indication: MINERAL SUPPLEMENTATION
     Route: 048
     Dates: start: 20080501
  10. NAPROXEN SODIUM [Concomitant]
     Indication: HEADACHE
     Dosage: ONE OR TWO DOSE NOT REPORTED AS NEEDED
     Route: 048
     Dates: start: 20060101
  11. ACETAMINOPHEN [Concomitant]
     Indication: MIGRAINE
     Route: 048

REACTIONS (14)
  - ACCIDENTAL EXPOSURE [None]
  - CHAPPED LIPS [None]
  - FALL [None]
  - FATIGUE [None]
  - HEAD INJURY [None]
  - INJECTION SITE ERYTHEMA [None]
  - INJECTION SITE HAEMORRHAGE [None]
  - INJECTION SITE IRRITATION [None]
  - INJECTION SITE RASH [None]
  - MYALGIA [None]
  - RASH MACULAR [None]
  - SOMNOLENCE [None]
  - SUDDEN ONSET OF SLEEP [None]
  - WEIGHT DECREASED [None]
